FAERS Safety Report 6359614-4 (Version None)
Quarter: 2009Q3

REPORT INFORMATION
  Report Type: 
  Country: None (occurrence: None)
  Receive Date: 20090917
  Receipt Date: 20090915
  Transmission Date: 20100115
  Serious: Yes (Other)
  Sender: FDA-Public Use
  Company Number: US-ELI_LILLY_AND_COMPANY-US200909003410

PATIENT
  Sex: Male

DRUGS (9)
  1. HUMALOG [Suspect]
     Indication: TYPE 1 DIABETES MELLITUS
     Route: 058
  2. HUMALOG [Suspect]
     Route: 058
  3. IBUPROFEN [Concomitant]
     Indication: ARTHRALGIA
  4. VESICARE [Concomitant]
  5. LISINOPRIL [Concomitant]
  6. LIPITOR [Concomitant]
  7. VITAMIN B-12 [Concomitant]
  8. PROVIGIL [Concomitant]
  9. ASPIRIN [Concomitant]

REACTIONS (4)
  - ARTHRALGIA [None]
  - BLOOD GLUCOSE DECREASED [None]
  - BLOOD GLUCOSE INCREASED [None]
  - HYPOGLYCAEMIC UNCONSCIOUSNESS [None]
